FAERS Safety Report 5063675-2 (Version None)
Quarter: 2006Q3

REPORT INFORMATION
  Report Type: 
  Country: None (occurrence: None)
  Receive Date: 20060724
  Receipt Date: 20060711
  Transmission Date: 20061208
  Serious: Yes (Hospitalization, Other)
  Sender: FDA-Public Use
  Company Number: HQWYE966406JUN06

PATIENT
  Age: 39 Year
  Sex: Female

DRUGS (2)
  1. EFFEXOR XR [Suspect]
     Indication: MAJOR DEPRESSION
     Dosage: 150 MG 1X PER 1 DAY ORAL - SEE IMAGE
     Route: 048
     Dates: start: 20020701, end: 20030601
  2. EFFEXOR XR [Suspect]
     Indication: MAJOR DEPRESSION
     Dosage: 150 MG 1X PER 1 DAY ORAL - SEE IMAGE
     Route: 048
     Dates: start: 20030101, end: 20050701

REACTIONS (6)
  - ABDOMINAL DISTENSION [None]
  - DRUG EXPOSURE DURING PREGNANCY [None]
  - IRRITABILITY [None]
  - NAUSEA [None]
  - OLIGOHYDRAMNIOS [None]
  - ORAL INTAKE REDUCED [None]
